FAERS Safety Report 6176478-2 (Version None)
Quarter: 2009Q2

REPORT INFORMATION
  Report Type: 
  Country: None (occurrence: None)
  Receive Date: 20090501
  Receipt Date: 20090422
  Transmission Date: 20091009
  Serious: Yes (Hospitalization, Other)
  Sender: FDA-Public Use
  Company Number: PHHY2009BR15490

PATIENT
  Age: 84 Year
  Sex: Female

DRUGS (10)
  1. EXELON [Suspect]
     Indication: DEMENTIA ALZHEIMER'S TYPE
     Dosage: 1 PATCH EVERY 24 HOURS
     Route: 062
     Dates: start: 20090301
  2. GINKGO BILOBA [Concomitant]
     Dosage: 1 TABLET/DAY
     Route: 048
  3. SIMVASTATIN [Concomitant]
     Indication: BLOOD CHOLESTEROL ABNORMAL
     Dosage: 1 TABLET/DAY
     Route: 048
  4. FLUOXETINE [Concomitant]
     Indication: DEPRESSION
     Dosage: 1 TABLET/DAY
     Route: 048
  5. ALOIS [Concomitant]
     Dosage: 1 TABLET IN MORNING AND ANOTHER ONE AT NIGHT
     Route: 048
     Dates: start: 20090201
  6. RIVOTRIL [Concomitant]
     Indication: SLEEP DISORDER
     Dosage: 35 DROPS AT NIGHT
     Route: 048
     Dates: start: 20080101
  7. ANCORON [Concomitant]
     Indication: CARDIAC DISORDER
     Dosage: 1TABLET/DAY
     Route: 048
  8. COUMADIN [Concomitant]
     Indication: ANTICOAGULANT THERAPY
     Dosage: 1 TABLET PER DAY IN 2 DAYS OF WEEK AND HALF TABLET IN THE OTHERS DAYS OF WEEK
     Route: 048
  9. CAPTOPRIL [Concomitant]
     Dosage: 3 TIMES PER DAY
  10. OMEPRAZOLE [Concomitant]
     Indication: PEPTIC ULCER
     Dosage: 1 TABLET/DAY
     Route: 048

REACTIONS (9)
  - AGITATION [None]
  - APALLIC SYNDROME [None]
  - COLONOSCOPY [None]
  - DYSPHAGIA [None]
  - GASTROINTESTINAL TUBE INSERTION [None]
  - HALLUCINATION [None]
  - HYPOKINESIA [None]
  - PARALYSIS [None]
  - SCREAMING [None]
